FAERS Safety Report 8773252 (Version 1)
Quarter: 2012Q4

REPORT INFORMATION
  Report Type: 
  Country: US (occurrence: US)
  Receive Date: 20120907
  Receipt Date: 20120907
  Transmission Date: 20130627
  Serious: No
  Sender: FDA-Public Use
  Company Number: US-ASTRAZENECA-2012SE60536

PATIENT
  Age: 48 Year
  Sex: Female

DRUGS (3)
  1. ATACAND HCT [Suspect]
     Route: 048
  2. HYDROCODONE [Concomitant]
  3. METFORMIN [Concomitant]

REACTIONS (2)
  - Oral infection [Unknown]
  - Drug dose omission [Unknown]
